FAERS Safety Report 13386108 (Version 1)
Quarter: 2017Q1

REPORT INFORMATION
  Report Type: Report from Study
  Country: US (occurrence: US)
  Receive Date: 20170330
  Receipt Date: 20170330
  Transmission Date: 20170429
  Serious: No
  Sender: FDA-Public Use
  Company Number: US-009507513-1703USA011624

PATIENT
  Sex: Female

DRUGS (1)
  1. NEXPLANON [Suspect]
     Active Substance: ETONOGESTREL
     Indication: CONTRACEPTION
     Dosage: 1 DF, UNK
     Route: 059
     Dates: start: 201505

REACTIONS (6)
  - Weight decreased [Unknown]
  - Mood swings [Unknown]
  - Menstruation irregular [Unknown]
  - Breast feeding [Unknown]
  - Anxiety [Unknown]
  - Menstruation normal [Unknown]
